FAERS Safety Report 5222654-2 (Version None)
Quarter: 2007Q1

REPORT INFORMATION
  Report Type: 
  Country: None (occurrence: None)
  Receive Date: 20061205
  Receipt Date: 20041104
  Transmission Date: 20070707
  Serious: Yes (Hospitalization)
  Sender: FDA-Public Use
  Company Number: 2004UW22753

PATIENT
  Age: 68 Year
  Sex: Female
  Weight: 54.4316 kg

DRUGS (4)
  1. PRILOSEC OTC [Suspect]
     Dosage: 2 DF DAILY PO
     Route: 048
     Dates: start: 20040302, end: 20041101
  2. PRILOSEC OTC [Suspect]
     Dosage: 1 DF HS PO
     Route: 048
     Dates: start: 20041102
  3. METHYLDOPA [Concomitant]
  4. DICYCLOMINE [Concomitant]

REACTIONS (3)
  - ERUCTATION [None]
  - FLATULENCE [None]
  - HYPERTENSION [None]
